FAERS Safety Report 8624376-4 (Version None)
Quarter: 2012Q3

REPORT INFORMATION
  Report Type: 
  Country: None (occurrence: None)
  Receive Date: 20120827
  Receipt Date: 20120821
  Transmission Date: 20120928
  Serious: Yes (Other)
  Sender: FDA-Public Use
  Company Number: US-PFIZER INC-2012205661

PATIENT
  Age: 59 Year
  Sex: Female
  Weight: 68 kg

DRUGS (1)
  1. GENOTROPIN [Suspect]
     Dosage: UNK

REACTIONS (7)
  - JOINT SWELLING [None]
  - PALPITATIONS [None]
  - SOMNOLENCE [None]
  - PAIN IN EXTREMITY [None]
  - PAIN [None]
  - CHEST PAIN [None]
  - FEELING ABNORMAL [None]
